FAERS Safety Report 4278967-4 (Version None)
Quarter: 2004Q1

REPORT INFORMATION
  Report Type: 
  Country: None (occurrence: None)
  Receive Date: 20040126
  Receipt Date: 20040119
  Transmission Date: 20041129
  Serious: Yes (Other)
  Sender: FDA-Public Use
  Company Number: NZ-ROCHE-356614

PATIENT
  Sex: Male

DRUGS (2)
  1. ROACCUTANE [Suspect]
     Indication: ACNE
     Route: 048
  2. ROACCUTANE [Suspect]
     Route: 048

REACTIONS (1)
  - LOCAL SWELLING [None]
